FAERS Safety Report 19798695 (Version 1)
Quarter: 2021Q3

REPORT INFORMATION
  Report Type: Spontaneous
  Country: US (occurrence: US)
  Receive Date: 20210907
  Receipt Date: 20210907
  Transmission Date: 20211014
  Serious: Yes (Death)
  Sender: FDA-Public Use
  Company Number: None

PATIENT
  Age: 79 Year
  Sex: Male
  Weight: 85.7 kg

DRUGS (1)
  1. BARICITINIB. [Suspect]
     Active Substance: BARICITINIB
     Indication: COVID-19
     Route: 048
     Dates: start: 20210901, end: 20210902

REACTIONS (7)
  - Blood culture positive [None]
  - Enterococcus test positive [None]
  - Culture urine positive [None]
  - Leukocytosis [None]
  - Gram stain positive [None]
  - Pseudomonas test positive [None]
  - General physical health deterioration [None]

NARRATIVE: CASE EVENT DATE: 20210906
